FAERS Safety Report 18488224 (Version 4)
Quarter: 2021Q1

REPORT INFORMATION
  Report Type: Spontaneous
  Country: US (occurrence: US)
  Receive Date: 20201110
  Receipt Date: 20210107
  Transmission Date: 20210419
  Serious: No
  Sender: FDA-Public Use
  Company Number: US-ALKERMES INC.-ALK-2020-004930

PATIENT
  Sex: Male

DRUGS (4)
  1. VIVITROL [Suspect]
     Active Substance: NALTREXONE
     Dosage: 380 MILLIGRAM, QMO
     Route: 030
     Dates: start: 20201112, end: 20201112
  2. VIVITROL [Suspect]
     Active Substance: NALTREXONE
     Indication: ALCOHOLISM
     Dosage: 380 MILLIGRAM, QMO
     Route: 030
     Dates: start: 20201218
  3. HEPATITIS VACCINES [Concomitant]
     Active Substance: UNSPECIFIED INGREDIENT
     Indication: ANTIVIRAL PROPHYLAXIS
     Dosage: UNK, ONE TIME DOSE
     Route: 065
     Dates: start: 202010, end: 202010
  4. VIVITROL [Suspect]
     Active Substance: NALTREXONE
     Dosage: 380 MILLIGRAM, QMO
     Route: 030
     Dates: start: 20200910, end: 20200910

REACTIONS (1)
  - Illness [Not Recovered/Not Resolved]
